FAERS Safety Report 9246373 (Version 1)
Quarter: 2013Q2

REPORT INFORMATION
  Report Type: Spontaneous
  Country: IN (occurrence: IN)
  Receive Date: 20130422
  Receipt Date: 20130422
  Transmission Date: 20140414
  Serious: Yes (Death, Hospitalization)
  Sender: FDA-Public Use
  Company Number: IN-MYLANLABS-2013S1007979

PATIENT
  Age: 62 Year
  Sex: Male

DRUGS (2)
  1. MELPHALAN [Suspect]
     Indication: STEM CELL TRANSPLANT
     Dosage: 200 MG/M2
     Route: 065
  2. CAPHOSOL [Concomitant]
     Dosage: SIX TIMES DAILY
     Route: 048

REACTIONS (5)
  - Gastrointestinal inflammation [Fatal]
  - Ileus [Unknown]
  - Enterocolitis [Fatal]
  - Sepsis [Fatal]
  - Pyrexia [Unknown]
